FAERS Safety Report 5353234-6 (Version None)
Quarter: 2007Q2

REPORT INFORMATION
  Report Type: 
  Country: None (occurrence: None)
  Receive Date: 20070608
  Receipt Date: 20070531
  Transmission Date: 20071010
  Serious: Yes (Hospitalization)
  Sender: FDA-Public Use
  Company Number: 2006SP004447

PATIENT
  Age: 54 Year
  Sex: Female
  Weight: 86 kg

DRUGS (13)
  1. XOPENEX [Suspect]
     Indication: CHRONIC OBSTRUCTIVE PULMONARY DISEASE
     Dosage: 90 UG;PRN;INHALATION
     Route: 055
     Dates: start: 20060601
  2. METHADONE HCL [Concomitant]
  3. ASPIRIN [Concomitant]
  4. OXYGEN [Concomitant]
  5. PRILOSEC [Concomitant]
  6. TORSEMIDE [Concomitant]
  7. CLONIDINE [Concomitant]
  8. POTASSIUM ACETATE [Concomitant]
  9. IRON [Concomitant]
  10. FLOVENT [Concomitant]
  11. PLAVIX [Concomitant]
  12. NITROGLYCERIN COMP. [Concomitant]
  13. SIMVASTATIN [Concomitant]

REACTIONS (11)
  - BLOOD GLUCOSE INCREASED [None]
  - BRONCHITIS [None]
  - CHRONIC OBSTRUCTIVE PULMONARY DISEASE [None]
  - DRUG LEVEL CHANGED [None]
  - HYPERTENSION [None]
  - HYPOKALAEMIA [None]
  - NASAL MUCOSAL DISORDER [None]
  - NEUTROPHIL PERCENTAGE INCREASED [None]
  - PURULENCE [None]
  - TACHYCARDIA [None]
  - WHITE BLOOD CELL COUNT INCREASED [None]
